FAERS Safety Report 7801584-3 (Version None)
Quarter: 2011Q4

REPORT INFORMATION
  Report Type: 
  Country: None (occurrence: None)
  Receive Date: 20111006
  Receipt Date: 20111006
  Transmission Date: 20120403
  Serious: Yes (Hospitalization)
  Sender: FDA-Public Use
  Company Number: None

PATIENT
  Age: 71 Year
  Sex: Male
  Weight: 69.1 kg

DRUGS (14)
  1. COD LIVER [Concomitant]
  2. OS CAL [Concomitant]
  3. AFRIN [Concomitant]
  4. PREDNESONE [Concomitant]
  5. DICLOFENAC [Suspect]
     Indication: RHEUMATOID ARTHRITIS
     Dosage: 75MG BID PO CHRONIC
     Route: 048
  6. METHOTREXOLE [Concomitant]
  7. PLAQUENIL [Concomitant]
  8. ENBREL [Concomitant]
  9. FOLIC ACID [Concomitant]
  10. FOSAMAX [Concomitant]
  11. PROZAC [Concomitant]
  12. PREDNISONE [Suspect]
     Indication: RHEUMATOID ARTHRITIS
     Dosage: 5MG DAILY PO CHRONIC
     Route: 048
  13. LEXAPRO [Concomitant]
  14. M.V.I. [Concomitant]

REACTIONS (2)
  - ANAEMIA [None]
  - DUODENAL ULCER [None]
